FAERS Safety Report 5068286-0 (Version None)
Quarter: 2006Q3

REPORT INFORMATION
  Report Type: 
  Country: None (occurrence: None)
  Receive Date: 20060802
  Receipt Date: 20050718
  Transmission Date: 20061208
  Serious: No
  Sender: FDA-Public Use
  Company Number: US-BRISTOL-MYERS SQUIBB COMPANY-13040688

PATIENT
  Age: 81 Year
  Sex: Male
  Weight: 78 kg

DRUGS (4)
  1. COUMADIN [Suspect]
     Indication: STENT PLACEMENT
     Dosage: 2.0 MG ALTERNATING WITH 2.5 MG DAILY; BEGAN 4-5 WEEKS AGO
     Dates: start: 20050601
  2. PLAVIX [Concomitant]
  3. ENALAPRIL MALEATE [Concomitant]
  4. GLUCOSAMINE [Concomitant]

REACTIONS (1)
  - GINGIVAL BLEEDING [None]
